FAERS Safety Report 8178844-2 (Version None)
Quarter: 2012Q1

REPORT INFORMATION
  Report Type: 
  Country: None (occurrence: None)
  Receive Date: 20120302
  Receipt Date: 20120223
  Transmission Date: 20120608
  Serious: Yes (Death)
  Sender: FDA-Public Use
  Company Number: ES-BRISTOL-MYERS SQUIBB COMPANY-16368656

PATIENT
  Age: 75 Year
  Sex: Male

DRUGS (5)
  1. METHYLPREDNISOLONE [Concomitant]
     Dates: start: 20070101
  2. ORENCIA [Suspect]
     Dates: start: 20090701
  3. LANSOPRAZOLE [Concomitant]
     Dates: start: 20020101
  4. ARAVA [Concomitant]
     Dates: start: 20070101
  5. CALCIUM-SANDOZ FORTE [Concomitant]
     Dosage: 1DF:1TAB,EFFERV TAB 1132MG CALC LACTATE GLUCONATE+875MG CALC CARBONATE,500MG CALCIUM+400 U OF VIT D
     Dates: start: 20020101

REACTIONS (2)
  - ASPHYXIA [None]
  - COMPLETED SUICIDE [None]
